FAERS Safety Report 7423302-3 (Version None)
Quarter: 2011Q2

REPORT INFORMATION
  Report Type: 
  Country: None (occurrence: None)
  Receive Date: 20110419
  Receipt Date: 20110412
  Transmission Date: 20111010
  Serious: Yes (Hospitalization)
  Sender: FDA-Public Use
  Company Number: FR-ROCHE-768660

PATIENT
  Sex: Male
  Weight: 82 kg

DRUGS (20)
  1. PREVISCAN [Suspect]
     Route: 065
     Dates: start: 20110325
  2. CICLOSPORIN [Suspect]
     Route: 048
  3. MYCOPHENOLATE MOFETIL [Suspect]
     Dosage: FREQUENCY: DAILY
     Route: 048
     Dates: start: 20110317
  4. NEXIUM [Concomitant]
     Route: 048
     Dates: start: 20110317
  5. MYCOPHENOLATE MOFETIL [Suspect]
     Route: 048
     Dates: start: 20110327
  6. NOVORAPID [Concomitant]
     Route: 058
     Dates: start: 20110319, end: 20110322
  7. PARACETAMOL [Concomitant]
     Route: 048
     Dates: start: 20110319, end: 20110323
  8. PREDNISONE [Suspect]
     Route: 048
  9. HALDOL [Concomitant]
     Dates: start: 20110321, end: 20110323
  10. BECILAN [Concomitant]
     Route: 048
     Dates: start: 20110321, end: 20110323
  11. CALCIDIA [Concomitant]
     Dates: start: 20110325
  12. CICLOSPORIN [Suspect]
     Dosage: FREQUENCY: DAILY
     Route: 048
     Dates: start: 20110318
  13. RIVOTRIL [Concomitant]
     Route: 048
     Dates: start: 20110318
  14. LASIX [Concomitant]
     Route: 048
     Dates: start: 20110317
  15. ACUPAN [Concomitant]
     Dosage: TDD: 3 VIALS.
     Route: 042
     Dates: start: 20110318, end: 20110323
  16. BACTRIM [Concomitant]
     Dates: start: 20110322
  17. PREDNISONE [Suspect]
     Dosage: FREQUENCY: DAILY.
     Route: 048
     Dates: start: 20110318
  18. HEPARIN SODIUM [Suspect]
     Route: 065
     Dates: start: 20110321, end: 20110326
  19. DITROPAN [Concomitant]
     Route: 048
     Dates: start: 20110320, end: 20110323
  20. BENERVA [Concomitant]
     Route: 048
     Dates: start: 20110321, end: 20110323

REACTIONS (2)
  - PERIRENAL HAEMATOMA [None]
  - PULMONARY EMBOLISM [None]
